FAERS Safety Report 6813238-0 (Version None)
Quarter: 2010Q3

REPORT INFORMATION
  Report Type: 
  Country: None (occurrence: None)
  Receive Date: 20100701
  Receipt Date: 20100623
  Transmission Date: 20110219
  Serious: Yes (Other)
  Sender: FDA-Public Use
  Company Number: BR-PFIZER INC-2009290897

PATIENT
  Age: 33 Year
  Sex: Female

DRUGS (3)
  1. DOSTINEX [Suspect]
     Indication: PITUITARY TUMOUR BENIGN
     Dosage: 0.25 MG (1/2 TABLET OF 0.5MG) TWICE A WEEK
     Route: 048
     Dates: start: 20090201
  2. DOSTINEX [Suspect]
     Dosage: 0.25 MG (1/2 TABLET OF 0.5MG) WEEKLY
     Route: 048
     Dates: start: 20090201
  3. DOMPERIDONE [Suspect]
     Indication: HELICOBACTER GASTRITIS
     Dosage: UNK

REACTIONS (4)
  - BLOOD PROLACTIN INCREASED [None]
  - BREAST DISCHARGE [None]
  - HEADACHE [None]
  - HELICOBACTER GASTRITIS [None]
